FAERS Safety Report 18864229 (Version 2)
Quarter: 2021Q3

REPORT INFORMATION
  Report Type: Spontaneous
  Country: US (occurrence: US)
  Receive Date: 20210209
  Receipt Date: 20210825
  Transmission Date: 20211014
  Serious: No
  Sender: FDA-Public Use
  Company Number: US-SA-2019SA256442

PATIENT
  Age: 75 Year
  Sex: Female

DRUGS (1)
  1. DUPIXENT [Suspect]
     Active Substance: DUPILUMAB
     Dosage: 300 MG, QOW
     Route: 058
     Dates: start: 201905

REACTIONS (6)
  - Hypoaesthesia [Unknown]
  - Middle insomnia [Unknown]
  - Weight increased [Unknown]
  - Eye pain [Unknown]
  - Dyspnoea [Unknown]
  - Vision blurred [Unknown]
